FAERS Safety Report 4639608-7 (Version None)
Quarter: 2005Q2

REPORT INFORMATION
  Report Type: 
  Country: None (occurrence: None)
  Receive Date: 20050328
  Receipt Date: 20041228
  Transmission Date: 20051028
  Serious: No
  Sender: FDA-Public Use
  Company Number: USA041287050

PATIENT
  Age: 57 Year
  Sex: Male
  Weight: 75 kg

DRUGS (4)
  1. STRATTERA [Suspect]
     Indication: MAJOR DEPRESSION
     Dosage: 80 MG
  2. LAMCITAL (LAMOTRIGINE) [Concomitant]
  3. KLONOPIN [Concomitant]
  4. TESTOSTERONE [Concomitant]

REACTIONS (4)
  - ANXIETY [None]
  - DRUG WITHDRAWAL SYNDROME [None]
  - HEADACHE [None]
  - HYPERHIDROSIS [None]
